FAERS Safety Report 21650090 (Version 1)
Quarter: 2022Q4

REPORT INFORMATION
  Report Type: Spontaneous
  Country: US (occurrence: None)
  Receive Date: 20221123
  Receipt Date: 20221123
  Transmission Date: 20230113
  Serious: Yes (Life-Threatening, Hospitalization, Disabling, Other)
  Sender: FDA-Public Use
  Company Number: None

PATIENT
  Age: 69 Year
  Sex: Female
  Weight: 74 kg

DRUGS (1)
  1. OZEMPIC [Suspect]
     Active Substance: SEMAGLUTIDE
     Indication: Type 2 diabetes mellitus

REACTIONS (8)
  - Gallbladder disorder [None]
  - Respiratory disorder [None]
  - Pancreatic carcinoma [None]
  - Aortic thrombosis [None]
  - Pulmonary thrombosis [None]
  - Pulmonary oedema [None]
  - Weight decreased [None]
  - Feeding disorder [None]

NARRATIVE: CASE EVENT DATE: 20220922
